FAERS Safety Report 4660322-6 (Version None)
Quarter: 2005Q2

REPORT INFORMATION
  Report Type: 
  Country: None (occurrence: None)
  Receive Date: 20050511
  Receipt Date: 20050511
  Transmission Date: 20051028
  Serious: Yes (Hospitalization)
  Sender: FDA-Public Use
  Company Number: None

PATIENT
  Age: 82 Year
  Sex: Male
  Weight: 83 kg

DRUGS (1)
  1. INTEGRILIN [Suspect]
     Indication: CARDIAC DISORDER
     Dosage: 18 MG BOLUS
     Dates: start: 20050721

REACTIONS (3)
  - ATRIAL FIBRILLATION [None]
  - DRUG ADMINISTRATION ERROR [None]
  - HAEMATOMA [None]
